FAERS Safety Report 18376641 (Version 1)
Quarter: 2020Q4

REPORT INFORMATION
  Report Type: Spontaneous
  Country: US (occurrence: US)
  Receive Date: 20201012
  Receipt Date: 20201012
  Transmission Date: 20210114
  Serious: No
  Sender: FDA-Public Use
  Company Number: None

PATIENT
  Sex: Female
  Weight: 136.9 kg

DRUGS (23)
  1. FENTANYL. [Concomitant]
     Active Substance: FENTANYL
  2. LORAZEPAM. [Concomitant]
     Active Substance: LORAZEPAM
  3. MUPIROCIN. [Concomitant]
     Active Substance: MUPIROCIN
  4. NYSTATIN. [Concomitant]
     Active Substance: NYSTATIN
  5. OMEPRAZOLE. [Concomitant]
     Active Substance: OMEPRAZOLE
  6. OXYCODONE HYDROCHLORIDE. [Concomitant]
     Active Substance: OXYCODONE HYDROCHLORIDE
  7. MEKTOVI [Suspect]
     Active Substance: BINIMETINIB
     Indication: SKIN CANCER
     Route: 048
     Dates: start: 20181020, end: 20201012
  8. ARIPIPRAZOLE. [Concomitant]
     Active Substance: ARIPIPRAZOLE
  9. DIPHENOXYLATE-ATROPINE [Concomitant]
     Active Substance: ATROPINE\DIPHENOXYLATE
  10. HUMALOG [Concomitant]
     Active Substance: INSULIN LISPRO
  11. RANITIDINE HCL [Concomitant]
     Active Substance: RANITIDINE HYDROCHLORIDE
  12. ATIVAN [Concomitant]
     Active Substance: LORAZEPAM
  13. FLORASTOR [Concomitant]
     Active Substance: SACCHAROMYCES CEREVISIAE
  14. GLUCAGEN HYPOKIT [Concomitant]
     Active Substance: GLUCAGON HYDROCHLORIDE
  15. LANTUS [Concomitant]
     Active Substance: INSULIN GLARGINE
  16. METAMUCIL MULTIHEALTH FIBER [Concomitant]
  17. LEVOTHYROXINE SODIUM. [Concomitant]
     Active Substance: LEVOTHYROXINE SODIUM
  18. LISINOPRIL. [Concomitant]
     Active Substance: LISINOPRIL
  19. BRAFTOVI [Suspect]
     Active Substance: ENCORAFENIB
     Indication: SKIN CANCER
     Route: 048
     Dates: start: 20181020, end: 20201012
  20. CYCLOBENZAPRINE HCL [Concomitant]
     Active Substance: CYCLOBENZAPRINE HYDROCHLORIDE
  21. DEXAMETHASONE. [Concomitant]
     Active Substance: DEXAMETHASONE
  22. FUROSEMIDE. [Concomitant]
     Active Substance: FUROSEMIDE
  23. REGLAN [Concomitant]
     Active Substance: METOCLOPRAMIDE HYDROCHLORIDE

REACTIONS (1)
  - Metastases to bone [None]
